FAERS Safety Report 5660861-5 (Version None)
Quarter: 2008Q1

REPORT INFORMATION
  Report Type: 
  Country: None (occurrence: None)
  Receive Date: 20080311
  Receipt Date: 20071204
  Transmission Date: 20080703
  Serious: Yes (Other)
  Sender: FDA-Public Use
  Company Number: US-BRISTOL-MYERS SQUIBB COMPANY-14004162

PATIENT
  Age: 42 Year
  Sex: Male

DRUGS (1)
  1. CARMUSTINE [Suspect]
     Indication: ASTROCYTOMA

REACTIONS (1)
  - MYELODYSPLASTIC SYNDROME [None]
